FAERS Safety Report 6328174-6 (Version None)
Quarter: 2009Q3

REPORT INFORMATION
  Report Type: 
  Country: None (occurrence: None)
  Receive Date: 20090825
  Receipt Date: 20090126
  Transmission Date: 20100115
  Serious: No
  Sender: FDA-Public Use
  Company Number: US-ABBOTT-09P-163-0499892-00

PATIENT
  Sex: Female
  Weight: 71.732 kg

DRUGS (2)
  1. SYNTHROID [Suspect]
     Indication: HYPOTHYROIDISM
     Route: 048
     Dates: start: 19980101, end: 20081201
  2. SYNTHROID [Suspect]
     Route: 048
     Dates: start: 20081201

REACTIONS (5)
  - BLOOD PRESSURE INCREASED [None]
  - DIZZINESS [None]
  - FLUID RETENTION [None]
  - TREMOR [None]
  - WEIGHT INCREASED [None]
